FAERS Safety Report 9995457 (Version 1)
Quarter: 2014Q1

REPORT INFORMATION
  Report Type: Spontaneous
  Country: US (occurrence: None)
  Receive Date: 20140307
  Receipt Date: 20140307
  Transmission Date: 20141002
  Serious: No
  Sender: FDA-Public Use
  Company Number: None

PATIENT
  Age: 74 Year
  Sex: Female

DRUGS (1)
  1. TRAMA-DOL HCL 50 MG [Suspect]
     Indication: ARTHRALGIA
     Dosage: 1 PILL EVERY 6 HOURS TWICE DAILY TAKEN BY MOUTH
     Route: 048
     Dates: start: 20140224, end: 20140227

REACTIONS (5)
  - Decreased appetite [None]
  - Insomnia [None]
  - Nervousness [None]
  - Chills [None]
  - Disturbance in attention [None]
